FAERS Safety Report 23990680 (Version 2)
Quarter: 2024Q3

REPORT INFORMATION
  Report Type: Spontaneous
  Country: NL (occurrence: NL)
  Receive Date: 20240619
  Receipt Date: 20240708
  Transmission Date: 20241017
  Serious: Yes (Hospitalization, Other)
  Sender: GUERBET
  Company Number: NL-GUERBET / GUERBET NEDERLAND BV-NL-20240015

PATIENT
  Age: 45 Year
  Sex: Female
  Weight: 63 kg

DRUGS (1)
  1. DOTAREM [Suspect]
     Active Substance: GADOTERATE MEGLUMINE
     Indication: Magnetic resonance imaging
     Route: 042
     Dates: start: 20240513, end: 20240513

REACTIONS (5)
  - Syncope [Recovered/Resolved]
  - Blood pressure fluctuation [Recovered/Resolved]
  - Trichoglossia [Recovered/Resolved]
  - Chest discomfort [Recovered/Resolved]
  - Circulatory collapse [Recovered/Resolved]

NARRATIVE: CASE EVENT DATE: 20240513
